FAERS Safety Report 23941486 (Version 2)
Quarter: 2024Q3

REPORT INFORMATION
  Report Type: Spontaneous
  Country: US (occurrence: US)
  Receive Date: 20240605
  Receipt Date: 20240728
  Transmission Date: 20241017
  Serious: Yes (Other)
  Sender: SANOFI AVENTIS
  Company Number: US-SA-2024SA165729

PATIENT
  Age: 20 Year
  Sex: Male

DRUGS (2)
  1. ELOCTATE [Suspect]
     Active Substance: EFMOROCTOCOG ALFA
     Dosage: 2500 UNITS/4000 UNITS, PRN
     Route: 042
  2. ELOCTATE [Suspect]
     Active Substance: EFMOROCTOCOG ALFA
     Dosage: 2500 UNITS/4000 UNITS, PRN
     Route: 042

REACTIONS (3)
  - Atrial fibrillation [Recovering/Resolving]
  - Catheter site pain [Unknown]
  - Catheter site scar [Unknown]

NARRATIVE: CASE EVENT DATE: 20240511
